FAERS Safety Report 10225494 (Version 1)
Quarter: 2014Q2

REPORT INFORMATION
  Report Type: Spontaneous
  Country: US (occurrence: US)
  Receive Date: 20140609
  Receipt Date: 20140609
  Transmission Date: 20141212
  Serious: Yes (Other)
  Sender: FDA-Public Use
  Company Number: US-ASTELLAS-2014US002158

PATIENT
  Sex: Male

DRUGS (2)
  1. PROGRAF [Suspect]
     Indication: LIVER TRANSPLANT
     Dosage: 0.5 MG, EVERY OTHER DAY
     Route: 065
     Dates: end: 201401
  2. PROGRAF [Suspect]
     Dosage: 0.25 MG, ONCE DAILY
     Route: 065

REACTIONS (2)
  - Wrong technique in drug usage process [Unknown]
  - Renal impairment [Unknown]
